FAERS Safety Report 17944078 (Version 6)
Quarter: 2021Q3

REPORT INFORMATION
  Report Type: Spontaneous
  Country: CA (occurrence: CA)
  Receive Date: 20200625
  Receipt Date: 20210923
  Transmission Date: 20211014
  Serious: Yes (Hospitalization, Other)
  Sender: FDA-Public Use
  Company Number: CA-ACCORD-186538

PATIENT
  Age: 41 Year
  Sex: Female

DRUGS (7)
  1. CLONAZEPAM. [Suspect]
     Active Substance: CLONAZEPAM
     Indication: INSOMNIA
     Dosage: 1 EVERY 1 DAYS
     Route: 048
  2. ARIPIPRAZOLE. [Interacting]
     Active Substance: ARIPIPRAZOLE
     Indication: PRODUCT USED FOR UNKNOWN INDICATION
     Route: 030
  3. QUETIAPINE. [Interacting]
     Active Substance: QUETIAPINE
     Indication: INSOMNIA
     Dosage: 1 EVERY 1 DAYS
     Route: 048
  4. CYMBALTA [Interacting]
     Active Substance: DULOXETINE HYDROCHLORIDE
     Indication: PRODUCT USED FOR UNKNOWN INDICATION
  5. RIVOTRIL [Interacting]
     Active Substance: CLONAZEPAM
     Indication: INSOMNIA
     Dosage: 1 EVERY 1 DAYS
  6. ABILIFY [Interacting]
     Active Substance: ARIPIPRAZOLE
     Indication: INSOMNIA
     Route: 030
  7. ABILIFY MAINTENA [Interacting]
     Active Substance: ARIPIPRAZOLE
     Indication: PRODUCT USED FOR UNKNOWN INDICATION
     Dosage: DOSAGE FORM: KIT?1 EVERY 1 DAYS
     Route: 030

REACTIONS (10)
  - Drug interaction [Unknown]
  - Stubbornness [Unknown]
  - Thinking abnormal [Unknown]
  - Prescribed underdose [Unknown]
  - Prescribed overdose [Unknown]
  - Mood altered [Unknown]
  - Intentional product use issue [Unknown]
  - Off label use [Unknown]
  - Product use issue [Unknown]
  - Abnormal behaviour [Unknown]
